FAERS Safety Report 4344409-3 (Version None)
Quarter: 2004Q2

REPORT INFORMATION
  Report Type: 
  Country: None (occurrence: None)
  Receive Date: 20040419
  Receipt Date: 20040406
  Transmission Date: 20050107
  Serious: Yes (Hospitalization, Other)
  Sender: FDA-Public Use
  Company Number: DE-JNJFOC-20040304273

PATIENT
  Age: 81 Year
  Sex: Female

DRUGS (6)
  1. REMINYL [Suspect]
     Indication: COGNITIVE DISORDER
     Dosage: 4 MG, IN 1 DAY, ORAL
     Route: 048
     Dates: start: 20040210, end: 20040216
  2. ZOLOFT [Concomitant]
  3. ENALAPRIL MALEATE [Concomitant]
  4. NICERGOLIN (NICERGOLINE) [Concomitant]
  5. AQUAPHOR (AQUAPHOR) [Concomitant]
  6. KORO-NYHADIN (CRATAEGUS) [Concomitant]

REACTIONS (4)
  - BLOOD URIC ACID INCREASED [None]
  - EXTRASYSTOLES [None]
  - TACHYARRHYTHMIA [None]
  - VENTRICULAR TACHYCARDIA [None]
